FAERS Safety Report 4662224-8 (Version None)
Quarter: 2005Q2

REPORT INFORMATION
  Report Type: 
  Country: None (occurrence: None)
  Receive Date: 20050512
  Receipt Date: 20050422
  Transmission Date: 20051028
  Serious: No
  Sender: FDA-Public Use
  Company Number: USA050496479

PATIENT
  Age: 13 Year
  Sex: Male

DRUGS (1)
  1. STRATTERA [Suspect]
     Dates: start: 20050401

REACTIONS (4)
  - ABDOMINAL TENDERNESS [None]
  - BLOOD BILIRUBIN INCREASED [None]
  - INFLUENZA LIKE ILLNESS [None]
  - NAUSEA [None]
